FAERS Safety Report 26025861 (Version 1)
Quarter: 2025Q4

REPORT INFORMATION
  Report Type: Spontaneous
  Country: US (occurrence: US)
  Receive Date: 20251111
  Receipt Date: 20251111
  Transmission Date: 20260117
  Serious: No
  Sender: NOVARTIS
  Company Number: US-002147023-NVSC2025US170108

PATIENT
  Age: 11 Year
  Sex: Female
  Weight: 28 kg

DRUGS (1)
  1. CLOFAZIMINE [Suspect]
     Active Substance: CLOFAZIMINE
     Indication: Mycobacterial infection
     Dosage: 50 MG, QD
     Route: 048
     Dates: start: 20250305, end: 20250605

REACTIONS (2)
  - Alopecia [Recovering/Resolving]
  - Infection [Recovering/Resolving]

NARRATIVE: CASE EVENT DATE: 20250407
